FAERS Safety Report 9028383 (Version 4)
Quarter: 2013Q1

REPORT INFORMATION
  Report Type: Report from Study
  Country: FR (occurrence: FR)
  Receive Date: 20130124
  Receipt Date: 20130327
  Transmission Date: 20140127
  Serious: Yes (Death, Life-Threatening)
  Sender: FDA-Public Use
  Company Number: FR-ASTELLAS-2013EU000539

PATIENT
  Age: 66 Year
  Sex: Male
  Weight: 93 kg

DRUGS (2)
  1. MICAFUNGIN INJECTION [Suspect]
     Indication: INFECTION
     Dosage: 100 MG, UNKNOWN/D
     Route: 042
     Dates: start: 20121008, end: 20121016
  2. MICAFUNGIN INJECTION [Suspect]
     Dosage: 100 MG, UNKNOWN/D
     Route: 042
     Dates: start: 20120921, end: 20121003

REACTIONS (3)
  - Drug ineffective [Not Recovered/Not Resolved]
  - Septic shock [Fatal]
  - Multi-organ failure [Fatal]
